FAERS Safety Report 10175982 (Version 1)
Quarter: 2014Q2

REPORT INFORMATION
  Report Type: Spontaneous
  Country: US (occurrence: None)
  Receive Date: 20140425
  Receipt Date: 20140425
  Transmission Date: 20141212
  Serious: No
  Sender: FDA-Public Use
  Company Number: AP356-00500-SPO-US

PATIENT
  Age: 57 Year
  Sex: Female

DRUGS (4)
  1. BELVIQ [Suspect]
     Indication: WEIGHT DECREASED
     Dosage: 10 MG, 1 IN 1 D, ORAL
     Route: 048
     Dates: start: 201402, end: 201402
  2. SYNTHROID (LEVOTHYROXINE SODIUM) [Concomitant]
  3. MINIVELLE (ESTRADIOL) [Concomitant]
  4. PROGESTERONE (PROGESTERONE) [Concomitant]

REACTIONS (2)
  - Fatigue [None]
  - Drug ineffective [None]
